FAERS Safety Report 22066282 (Version 2)
Quarter: 2023Q2

REPORT INFORMATION
  Report Type: Spontaneous
  Country: JP (occurrence: JP)
  Receive Date: 20230306
  Receipt Date: 20230428
  Transmission Date: 20230722
  Serious: Yes (Death, Life-Threatening, Hospitalization, Other)
  Sender: FDA-Public Use
  Company Number: JP-TAKEDA-2023TJP002915

PATIENT
  Age: 71 Year
  Sex: Female
  Weight: 53 kg

DRUGS (4)
  1. CABOMETYX [Suspect]
     Active Substance: CABOZANTINIB S-MALATE
     Indication: Renal cancer
     Dosage: 40 MG, QD
     Route: 048
     Dates: start: 20221012, end: 20221206
  2. CABOMETYX [Suspect]
     Active Substance: CABOZANTINIB S-MALATE
     Indication: Metastases to liver
     Dosage: 20 MG, QD
     Route: 048
     Dates: start: 20221207, end: 20230130
  3. OPDIVO [Suspect]
     Active Substance: NIVOLUMAB
     Indication: Renal cancer
     Dosage: 480 MG, Q4WEEKS
     Route: 042
     Dates: start: 20221012, end: 20230104
  4. OPDIVO [Suspect]
     Active Substance: NIVOLUMAB
     Indication: Metastases to liver
     Dosage: UNK

REACTIONS (4)
  - Interstitial lung disease [Fatal]
  - Pyrexia [Unknown]
  - Lymph node abscess [Unknown]
  - Hand dermatitis [Unknown]

NARRATIVE: CASE EVENT DATE: 20221109
